FAERS Safety Report 17716490 (Version 3)
Quarter: 2021Q1

REPORT INFORMATION
  Report Type: Report from Study
  Country: US (occurrence: US)
  Receive Date: 20200428
  Receipt Date: 20210223
  Transmission Date: 20210419
  Serious: Yes (Hospitalization)
  Sender: FDA-Public Use
  Company Number: US-ROCHE-2573157

PATIENT
  Age: 56 Year
  Sex: Male
  Weight: 99.43 kg

DRUGS (2)
  1. ATEZOLIZUMAB. [Suspect]
     Active Substance: ATEZOLIZUMAB
     Indication: NEOPLASM MALIGNANT
     Dosage: MOST RECENT DOSE OF ATEZOLIZUMAB PRIOR TO ADVERSE EVENT ONSET: 1200 MG
     Route: 041
     Dates: start: 20190520
  2. BEVACIZUMAB. [Suspect]
     Active Substance: BEVACIZUMAB
     Indication: NEOPLASM MALIGNANT
     Dosage: DOSE OF LAST DOSE OF BEVACIZUMAB: 1424 MG
     Route: 042
     Dates: start: 20190520, end: 20200316

REACTIONS (1)
  - Acute kidney injury [Recovered/Resolved]

NARRATIVE: CASE EVENT DATE: 20200319
